FAERS Safety Report 4358319-9 (Version None)
Quarter: 2004Q2

REPORT INFORMATION
  Report Type: 
  Country: None (occurrence: None)
  Receive Date: 20040514
  Receipt Date: 20040511
  Transmission Date: 20050107
  Serious: Yes (Death, Hospitalization)
  Sender: FDA-Public Use
  Company Number: FR-MERCK-0405FRA00028

PATIENT
  Age: 79 Year
  Sex: Female

DRUGS (7)
  1. ESOMEPRAZOLE MAGNESIUM [Suspect]
     Route: 048
  2. FORMALDEHYDE SOLUTION AND TYROTHRICIN [Suspect]
     Route: 065
  3. HYZAAR [Suspect]
     Route: 048
  4. LERCANIDIPINE HYDROCHLORIDE [Suspect]
     Route: 048
  5. METRONIDAZOLE AND SPIRAMYCIN [Suspect]
     Route: 065
  6. RIMEXOLONE [Suspect]
     Route: 047
  7. TIMOPTIC-XE [Suspect]
     Indication: GLAUCOMA
     Route: 047

REACTIONS (3)
  - ASTHENIA [None]
  - COMA [None]
  - INFECTION [None]
